FAERS Safety Report 9976007 (Version 2)
Quarter: 2014Q1

REPORT INFORMATION
  Report Type: Spontaneous
  Country: GB (occurrence: GB)
  Receive Date: 20140306
  Receipt Date: 20140324
  Transmission Date: 20141002
  Serious: Yes (Other)
  Sender: FDA-Public Use
  Company Number: GB-WATSON-2014-03599

PATIENT
  Age: 12 Year
  Sex: 0

DRUGS (1)
  1. BACLOFEN (UNKNOWN) [Suspect]
     Indication: PRODUCT USED FOR UNKNOWN INDICATION
     Dosage: UNK UKN, UNK
     Route: 037

REACTIONS (5)
  - Cerebrospinal fluid leakage [Recovering/Resolving]
  - Implant site discharge [Recovering/Resolving]
  - Wound dehiscence [Recovering/Resolving]
  - Headache [Recovering/Resolving]
  - Pain [Recovering/Resolving]
